FAERS Safety Report 16404250 (Version 2)
Quarter: 2019Q2

REPORT INFORMATION
  Report Type: Spontaneous
  Country: US (occurrence: US)
  Receive Date: 20190607
  Receipt Date: 20190617
  Transmission Date: 20190711
  Serious: Yes (Other)
  Sender: FDA-Public Use
  Company Number: US-BAYER-2019-105958

PATIENT
  Age: 8 Year
  Sex: Male
  Weight: 42.18 kg

DRUGS (1)
  1. COPPERTONE KIDS SPF 50 [Suspect]
     Active Substance: OCTINOXATE\OCTISALATE\ZINC OXIDE
     Indication: THERAPEUTIC SKIN CARE TOPICAL
     Dosage: UNK
     Route: 061
     Dates: start: 20190526

REACTIONS (1)
  - Sunburn [None]

NARRATIVE: CASE EVENT DATE: 201905
